FAERS Safety Report 7052213-0 (Version None)
Quarter: 2010Q4

REPORT INFORMATION
  Report Type: 
  Country: None (occurrence: None)
  Receive Date: 20101013
  Receipt Date: 20100929
  Transmission Date: 20110411
  Serious: Yes (Life-Threatening)
  Sender: FDA-Public Use
  Company Number: 2010100004

PATIENT
  Age: 40 Year
  Sex: Female

DRUGS (4)
  1. AZELASTINE HCL [Suspect]
     Dosage: OPHTHALMIC
     Route: 047
     Dates: start: 20040101
  2. DESLORATADINE [Suspect]
     Dosage: (5 MG)
     Dates: start: 20040101
  3. SYMBICORT [Suspect]
     Dosage: RESPIRATORY (INHALATION)
     Route: 055
     Dates: start: 20040101
  4. CELESTAMINE TAB [Suspect]
     Dosage: (AS REQUIRED)
     Dates: start: 20040101

REACTIONS (4)
  - CARDIO-RESPIRATORY ARREST [None]
  - ELECTROCARDIOGRAM QT PROLONGED [None]
  - ELECTROCARDIOGRAM REPOLARISATION ABNORMALITY [None]
  - VENTRICULAR FIBRILLATION [None]
